FAERS Safety Report 9233031 (Version 1)
Quarter: 2013Q2

REPORT INFORMATION
  Report Type: Spontaneous
  Country: US (occurrence: None)
  Receive Date: 20130415
  Receipt Date: 20130415
  Transmission Date: 20140414
  Serious: No
  Sender: FDA-Public Use
  Company Number: None

PATIENT
  Age: 63 Year
  Sex: Male
  Weight: 101.4 kg

DRUGS (1)
  1. ATORVASTATIN [Suspect]
     Route: 048
     Dates: start: 20121206, end: 20130412

REACTIONS (3)
  - Nausea [None]
  - Vomiting [None]
  - Product substitution issue [None]
